FAERS Safety Report 25485488 (Version 1)
Quarter: 2025Q2

REPORT INFORMATION
  Report Type: Spontaneous
  Country: JP (occurrence: JP)
  Receive Date: 20250626
  Receipt Date: 20250626
  Transmission Date: 20250716
  Serious: Yes (Other)
  Sender: BRISTOL-MYERS SQUIBB COMPANY
  Company Number: JP-BRISTOL-MYERS SQUIBB COMPANY-2025-087919

PATIENT
  Age: 63 Year

DRUGS (2)
  1. YERVOY [Suspect]
     Active Substance: IPILIMUMAB
     Indication: Non-small cell lung cancer
     Dosage: DOSE : YV: 1MG/KG, OP: 360MG;     FREQ : YV: ONCE/ 6 WEEKS?OP: ONCE/ 3WEEKS
     Route: 041
  2. OPDIVO [Suspect]
     Active Substance: NIVOLUMAB
     Indication: Non-small cell lung cancer
     Dosage: DOSE : YV: 1MG/KG, OP: 360MG;     FREQ : YV: ONCE/ 6 WEEKS?OP: ONCE/ 3WEEKS
     Route: 041

REACTIONS (3)
  - Adrenal insufficiency [Recovered/Resolved]
  - Non-small cell lung cancer [Not Recovered/Not Resolved]
  - Pleural effusion [Unknown]
